FAERS Safety Report 11114764 (Version 2)
Quarter: 2016Q3

REPORT INFORMATION
  Report Type: Other
  Country: FR (occurrence: FR)
  Receive Date: 20150515
  Receipt Date: 20160706
  Transmission Date: 20161109
  Serious: Yes (Life-Threatening, Hospitalization)
  Sender: FDA-Public Use
  Company Number: FR-LUPIN PHARMACEUTICALS INC.-2015-01309

PATIENT
  Age: 50 Year
  Sex: Female

DRUGS (2)
  1. TRAMADOL. [Suspect]
     Active Substance: TRAMADOL
     Indication: PRODUCT USED FOR UNKNOWN INDICATION
     Route: 048
  2. ALPRAZOLAM. [Suspect]
     Active Substance: ALPRAZOLAM
     Indication: PRODUCT USED FOR UNKNOWN INDICATION
     Route: 065

REACTIONS (10)
  - Intentional overdose [Unknown]
  - Seizure [Recovering/Resolving]
  - Toxicity to various agents [Unknown]
  - Ventricular tachycardia [Recovering/Resolving]
  - Acute kidney injury [Unknown]
  - Respiratory arrest [Recovering/Resolving]
  - Cardiogenic shock [Recovering/Resolving]
  - Lactic acidosis [Unknown]
  - Mydriasis [Recovering/Resolving]
  - Hepatic failure [Unknown]
